FAERS Safety Report 23975394 (Version 2)
Quarter: 2024Q2

REPORT INFORMATION
  Report Type: Spontaneous
  Country: KR (occurrence: KR)
  Receive Date: 20240614
  Receipt Date: 20240619
  Transmission Date: 20240715
  Serious: Yes (Other)
  Sender: FDA-Public Use
  Company Number: KR-002147023-NVSC2024KR121042

PATIENT
  Age: 67 Year
  Sex: Female

DRUGS (2)
  1. BEOVU [Suspect]
     Active Substance: BROLUCIZUMAB-DBLL
     Indication: Age-related macular degeneration
     Dosage: 6 MG, QMO
     Route: 031
  2. BEOVU [Suspect]
     Active Substance: BROLUCIZUMAB-DBLL
     Dosage: 6 MG (2ND INJECTION)
     Route: 031

REACTIONS (4)
  - Vitritis [Unknown]
  - Retinal ischaemia [Unknown]
  - Eye inflammation [Recovered/Resolved]
  - Visual impairment [Unknown]
